FAERS Safety Report 22821154 (Version 2)
Quarter: 2023Q4

REPORT INFORMATION
  Report Type: Spontaneous
  Country: IN (occurrence: IN)
  Receive Date: 20230814
  Receipt Date: 20231005
  Transmission Date: 20240110
  Serious: Yes (Other)
  Sender: FDA-Public Use
  Company Number: IN-PFIZER INC-2021082255

PATIENT
  Age: 63 Year
  Sex: Female
  Weight: 55.7 kg

DRUGS (13)
  1. PALBOCICLIB [Suspect]
     Active Substance: PALBOCICLIB
     Indication: Breast cancer metastatic
     Dosage: 75 MG, 1-0-0 X 7 DAYS
     Route: 048
  2. PALBOCICLIB [Suspect]
     Active Substance: PALBOCICLIB
     Dosage: 100 MG, 1X/DAY
     Route: 048
     Dates: start: 20200919
  3. PALBOCICLIB [Suspect]
     Active Substance: PALBOCICLIB
     Dosage: ONCE A DAY FOR EVERY 21 DAYS
     Route: 048
     Dates: start: 20201001, end: 20211221
  4. PALBOCICLIB [Suspect]
     Active Substance: PALBOCICLIB
     Dosage: 100 MG, 1X/DAY
     Route: 048
     Dates: start: 202010
  5. PALBOCICLIB [Suspect]
     Active Substance: PALBOCICLIB
     Dosage: ONCE A DAY FOR DAY 1- 21 EVERY 28 DAYS
     Route: 048
     Dates: start: 20201107
  6. PALBOCICLIB [Suspect]
     Active Substance: PALBOCICLIB
     Dosage: 1X/DAY, X21 DAYS
     Route: 048
     Dates: start: 20211222
  7. PALBOCICLIB [Suspect]
     Active Substance: PALBOCICLIB
     Dosage: UNK
     Dates: end: 20220303
  8. PALBOCICLIB [Suspect]
     Active Substance: PALBOCICLIB
     Dosage: 75 MG, 1X/DAY
     Route: 048
  9. ANASTROZOLE [Concomitant]
     Active Substance: ANASTROZOLE
     Indication: Breast cancer metastatic
     Dosage: 1X/DAY EVERY 28 DAYS
     Route: 048
  10. CALCIUM CARBONATE\CHOLECALCIFEROL [Concomitant]
     Active Substance: CALCIUM CARBONATE\CHOLECALCIFEROL
     Dosage: 2X/DAY EVERY 28 DAYS
  11. ZOLEDRONIC ACID [Concomitant]
     Active Substance: ZOLEDRONIC ACID
     Dosage: 4 MG
  12. OROFER S [Concomitant]
     Dosage: UNK
  13. FULVESTRANT [Concomitant]
     Active Substance: FULVESTRANT
     Dosage: UNK

REACTIONS (19)
  - White blood cell count decreased [Recovered/Resolved]
  - Neutrophil count decreased [Unknown]
  - Dental implantation [Unknown]
  - Vertigo positional [Unknown]
  - Blood pressure increased [Unknown]
  - Depression [Unknown]
  - Anxiety [Unknown]
  - Haemoglobin decreased [Unknown]
  - Platelet count decreased [Recovered/Resolved]
  - Blood urea increased [Unknown]
  - Crying [Unknown]
  - Lip disorder [Unknown]
  - Eyelid ptosis [Unknown]
  - Headache [Unknown]
  - Oropharyngeal pain [Unknown]
  - Arthropathy [Unknown]
  - Arthralgia [Unknown]
  - Neoplasm progression [Unknown]
  - Glycosylated haemoglobin increased [Unknown]

NARRATIVE: CASE EVENT DATE: 20201001
